FAERS Safety Report 6031741-0 (Version None)
Quarter: 2008Q4

REPORT INFORMATION
  Report Type: 
  Country: None (occurrence: None)
  Receive Date: 20081224
  Receipt Date: 20081013
  Transmission Date: 20090506
  Serious: No
  Sender: FDA-Public Use
  Company Number: 2008PV036916

PATIENT
  Age: 63 Year
  Sex: Male

DRUGS (4)
  1. SYMLIN [Suspect]
     Indication: INSULIN RESISTANCE
     Dosage: 120 MCG;TID;SC
     Route: 058
     Dates: start: 20080801
  2. INSULIN [Concomitant]
  3. HUMALOG [Concomitant]
  4. ACTOS [Concomitant]

REACTIONS (1)
  - BLOOD GLUCOSE INCREASED [None]
